FAERS Safety Report 10081322 (Version 1)
Quarter: 2014Q2

REPORT INFORMATION
  Report Type: Spontaneous
  Country: US (occurrence: US)
  Receive Date: 20140416
  Receipt Date: 20140416
  Transmission Date: 20141212
  Serious: Yes (Other)
  Sender: FDA-Public Use
  Company Number: US-JNJFOC-20140407299

PATIENT
  Age: 66 Year
  Sex: Male
  Weight: 81 kg

DRUGS (13)
  1. OLYSIO [Suspect]
     Indication: HEPATITIS C
     Route: 065
     Dates: start: 201401
  2. SOFOSBUVIR [Concomitant]
     Indication: HEPATITIS C
     Route: 065
     Dates: start: 201401
  3. RIBAVIRIN [Concomitant]
     Indication: HEPATITIS C
     Route: 065
     Dates: start: 201401
  4. TENOFOVIR [Concomitant]
     Indication: HIV INFECTION
     Dosage: HAS BEEN ON FOR OVER 10 YEARS
     Route: 065
  5. RALTEGRAVIR [Concomitant]
     Indication: HIV INFECTION
     Route: 048
  6. TRAZODONE [Concomitant]
     Indication: INSOMNIA
     Dosage: AT NIGHT
     Route: 065
  7. TRAZODONE [Concomitant]
     Indication: DEPRESSION
     Dosage: AT NIGHT
     Route: 065
  8. BUPROPION [Concomitant]
     Indication: DEPRESSION
     Route: 065
  9. EMTRICITABINE [Concomitant]
     Indication: HIV INFECTION
     Dosage: HAS BEEN ON FOR OVER 10 YEARS
     Route: 065
  10. SIMVASTATIN [Concomitant]
     Indication: HYPERLIPIDAEMIA
     Route: 065
  11. ASPIRIN [Concomitant]
     Indication: PRODUCT USED FOR UNKNOWN INDICATION
     Route: 048
  12. METOPROLOL [Concomitant]
     Indication: PRODUCT USED FOR UNKNOWN INDICATION
     Route: 048
  13. LOSARTAN [Concomitant]
     Indication: PRODUCT USED FOR UNKNOWN INDICATION
     Dosage: HCTZ 100/12.5 MG
     Route: 048

REACTIONS (4)
  - Blood bilirubin increased [Recovering/Resolving]
  - Blood creatinine increased [Recovering/Resolving]
  - Insomnia [Unknown]
  - Off label use [Unknown]
